FAERS Safety Report 7611165-2 (Version None)
Quarter: 2011Q3

REPORT INFORMATION
  Report Type: 
  Country: None (occurrence: None)
  Receive Date: 20110707
  Receipt Date: 20110625
  Transmission Date: 20111222
  Serious: No
  Sender: FDA-Public Use
  Company Number: 2347

PATIENT
  Sex: Female

DRUGS (1)
  1. CALDOLOR [Suspect]
     Indication: ANALGESIC THERAPY
     Dosage: 800 MG IV
     Route: 042
     Dates: start: 20110617

REACTIONS (6)
  - INJECTION SITE PAIN [None]
  - POST PROCEDURAL COMPLICATION [None]
  - CONTUSION [None]
  - SKIN DISCOLOURATION [None]
  - OEDEMA PERIPHERAL [None]
  - PAIN IN EXTREMITY [None]
